FAERS Safety Report 5198480-X (Version None)
Quarter: 2006Q4

REPORT INFORMATION
  Report Type: 
  Country: None (occurrence: None)
  Receive Date: 20061229
  Receipt Date: 20061215
  Transmission Date: 20070319
  Serious: Yes (Hospitalization)
  Sender: FDA-Public Use
  Company Number: 2006BI018474

PATIENT
  Age: 51 Year
  Sex: Female
  Weight: 74.8435 kg

DRUGS (2)
  1. AVONEX [Suspect]
     Indication: MULTIPLE SCLEROSIS
     Dosage: 30 UG; QW; IM
     Route: 030
     Dates: start: 20000101, end: 20030801
  2. AVONEX [Suspect]
     Indication: MULTIPLE SCLEROSIS
     Dosage: 30 UG; QW; IM
     Route: 030
     Dates: start: 20030801

REACTIONS (8)
  - ARTHRITIS [None]
  - CEREBROVASCULAR ACCIDENT [None]
  - CONTUSION [None]
  - HAEMORRHAGE [None]
  - OPERATIVE HAEMORRHAGE [None]
  - PAIN IN JAW [None]
  - PULMONARY EMBOLISM [None]
  - SYNOVIAL DISORDER [None]
